FAERS Safety Report 4270657-7 (Version None)
Quarter: 2004Q1

REPORT INFORMATION
  Report Type: 
  Country: None (occurrence: None)
  Receive Date: 20040114
  Receipt Date: 20031119
  Transmission Date: 20041129
  Serious: Yes (Hospitalization)
  Sender: FDA-Public Use
  Company Number: WAES 0311USA02317

PATIENT
  Age: 89 Year
  Sex: Female

DRUGS (9)
  1. [THERAPY UNSPECIFIED] [Concomitant]
  2. ALDIOXA [Concomitant]
  3. AMLODIPINE BESYLATE [Concomitant]
  4. CLOTIAZEPAM [Concomitant]
  5. PEPCID [Suspect]
     Route: 048
     Dates: start: 20020919
  6. COZAAR [Suspect]
     Route: 048
     Dates: start: 20021029, end: 20021213
  7. POTASSIUM CHLORIDE [Concomitant]
  8. TAMOXIFEN CITRATE [Concomitant]
  9. THYROID [Concomitant]

REACTIONS (4)
  - ALANINE AMINOTRANSFERASE INCREASED [None]
  - ASPARTATE AMINOTRANSFERASE INCREASED [None]
  - BLOOD LACTATE DEHYDROGENASE INCREASED [None]
  - HEPATIC FUNCTION ABNORMAL [None]
